FAERS Safety Report 7507278-6 (Version None)
Quarter: 2011Q2

REPORT INFORMATION
  Report Type: 
  Country: None (occurrence: None)
  Receive Date: 20110526
  Receipt Date: 20110518
  Transmission Date: 20111010
  Serious: Yes (Hospitalization, Other)
  Sender: FDA-Public Use
  Company Number: SE-MEDIMMUNE-MEDI-0013204

PATIENT
  Sex: Female

DRUGS (1)
  1. SYNAGIS [Suspect]
     Dates: start: 20101201, end: 20110328

REACTIONS (2)
  - PNEUMONIA BACTERIAL [None]
  - FEBRILE CONVULSION [None]
